FAERS Safety Report 5094120-9 (Version None)
Quarter: 2006Q3

REPORT INFORMATION
  Report Type: 
  Country: None (occurrence: None)
  Receive Date: 20060731
  Receipt Date: 20060414
  Transmission Date: 20061208
  Serious: No
  Sender: FDA-Public Use
  Company Number: 2006PV012098

PATIENT
  Age: 59 Year
  Sex: Male
  Weight: 113.8529 kg

DRUGS (1)
  1. BYETTA [Suspect]
     Indication: DIABETES MELLITUS NON-INSULIN-DEPENDENT
     Dosage: SEE IMAGE
     Route: 058
     Dates: start: 20060101, end: 20060101

REACTIONS (4)
  - ANOREXIA [None]
  - EARLY SATIETY [None]
  - ENERGY INCREASED [None]
  - WEIGHT DECREASED [None]
